FAERS Safety Report 17066966 (Version 1)
Quarter: 2019Q4

REPORT INFORMATION
  Report Type: Spontaneous
  Country: TW (occurrence: TW)
  Receive Date: 20191122
  Receipt Date: 20191122
  Transmission Date: 20200122
  Serious: Yes (Other)
  Sender: FDA-Public Use
  Company Number: NVSC2019TW039543

PATIENT
  Sex: Male

DRUGS (1)
  1. CYCLOSPORINE. [Suspect]
     Active Substance: CYCLOSPORINE
     Indication: CHRONIC GRAFT VERSUS HOST DISEASE
     Route: 065

REACTIONS (8)
  - Renal impairment [Unknown]
  - Oral pain [Unknown]
  - Pancytopenia [Unknown]
  - Ulcer [Unknown]
  - Product use in unapproved indication [Unknown]
  - Dermatitis [Unknown]
  - Electrolyte imbalance [Unknown]
  - Weight decreased [Unknown]
